FAERS Safety Report 8986306 (Version 1)
Quarter: 2012Q4

REPORT INFORMATION
  Report Type: Spontaneous
  Country: US (occurrence: None)
  Receive Date: 20121217
  Receipt Date: 20121217
  Transmission Date: 20130627
  Serious: Yes (Hospitalization)
  Sender: FDA-Public Use
  Company Number: AG-2012-1928

PATIENT
  Age: 79 Year
  Sex: Male
  Weight: 59 kg

DRUGS (7)
  1. CHLORAMBUCIL (CHLORAMBUCIL) (UNKNOWN) [Suspect]
     Indication: CHRONIC LYMPHOCYTIC LEUKAEMIA
     Dosage: Lat dose prior to SAE 01Dec2010
     Dates: start: 20101201
  2. OBINUTUZUMAB (MONOCLONAL ANTIBODIES) (UNKNOWN) [Suspect]
     Indication: CHRONIC LYMPHOCYTIC LEUKAEMIA
     Dosage: Lat dose prior to SAE 01Dec2010
     Dates: start: 20101201
  3. CITALOPRAM (CITALOPRAM) (UNKNOWN) [Concomitant]
  4. TAMSULOSIN (TAMSULOSIN) (UNKNOWN) [Concomitant]
  5. ALLOPURINOL (ALLOPURINOL) (UNKNOWN) [Concomitant]
  6. OMEPRAZOLE (OMEPRAZOLE) (UNKNOWN) [Concomitant]
  7. AMOXICILLIN (AMOXICILLIN) (UNKNOWN) [Concomitant]

REACTIONS (1)
  - Tumour lysis syndrome [None]
